FAERS Safety Report 4987132-4 (Version None)
Quarter: 2006Q2

REPORT INFORMATION
  Report Type: 
  Country: None (occurrence: None)
  Receive Date: 20060501
  Receipt Date: 20060418
  Transmission Date: 20061013
  Serious: Yes (Other)
  Sender: FDA-Public Use
  Company Number: PHBS2006NL06090

PATIENT
  Age: 65 Year
  Sex: Male

DRUGS (4)
  1. DILTIAZEM HCL [Suspect]
     Indication: HYPERCHOLESTEROLAEMIA
     Dosage: 240 MG/DAY
     Dates: start: 19950101, end: 20050701
  2. ACIDUM ACETYLSALICYLICUM [Concomitant]
     Dosage: 80 MG/DAY
     Route: 048
     Dates: start: 19950101
  3. QUINAPRILUM [Concomitant]
     Dosage: 10 MG/DAY
     Route: 048
     Dates: start: 19850101
  4. LESCOL [Suspect]
     Indication: HYPERCHOLESTEROLAEMIA
     Dosage: UNK, UNK
     Route: 048
     Dates: start: 19950101, end: 20050301

REACTIONS (3)
  - MUSCLE RUPTURE [None]
  - SHOULDER OPERATION [None]
  - TENDON RUPTURE [None]
